FAERS Safety Report 25322012 (Version 1)
Quarter: 2025Q2

REPORT INFORMATION
  Report Type: Report from Study
  Country: ES (occurrence: ES)
  Receive Date: 20250516
  Receipt Date: 20250516
  Transmission Date: 20250717
  Serious: Yes (Death, Other)
  Sender: RECORDATI
  Company Number: ES-ORPHANEU-2025003297

PATIENT
  Age: 53 Year
  Sex: Male

DRUGS (2)
  1. SILTUXIMAB [Suspect]
     Active Substance: SILTUXIMAB
     Indication: Castleman^s disease
  2. CORTISONE [Suspect]
     Active Substance: CORTISONE
     Indication: Castleman^s disease

REACTIONS (8)
  - Arrhythmia [Fatal]
  - Chronic kidney disease [Unknown]
  - Condition aggravated [Unknown]
  - Pancytopenia [Unknown]
  - Hypothyroidism [Unknown]
  - Acute respiratory failure [Unknown]
  - Depressed level of consciousness [Unknown]
  - Hypergammaglobulinaemia [Unknown]
